FAERS Safety Report 20119870 (Version 1)
Quarter: 2021Q4

REPORT INFORMATION
  Report Type: Spontaneous
  Country: KR (occurrence: KR)
  Receive Date: 20211126
  Receipt Date: 20211126
  Transmission Date: 20220303
  Serious: Yes (Other)
  Sender: FDA-Public Use
  Company Number: KR-NOVARTISPH-NVSC2021KR271143

PATIENT

DRUGS (1)
  1. COSENTYX [Suspect]
     Active Substance: SECUKINUMAB
     Indication: Ankylosing spondylitis
     Dosage: UNK, UNKNOWN
     Route: 065
     Dates: start: 2021

REACTIONS (2)
  - Tuberculosis [Unknown]
  - Chest discomfort [Unknown]
